FAERS Safety Report 24582724 (Version 2)
Quarter: 2025Q3

REPORT INFORMATION
  Report Type: Spontaneous
  Country: EU (occurrence: EU)
  Receive Date: 20241106
  Receipt Date: 20250809
  Transmission Date: 20251020
  Serious: Yes (Other)
  Sender: ALEXION PHARMACEUTICALS
  Company Number: EU-002147023-NVSC2023DE259432

PATIENT
  Age: 77 Year
  Sex: Male

DRUGS (38)
  1. CRESTOR [Suspect]
     Active Substance: ROSUVASTATIN CALCIUM
     Route: 065
  2. TADALAFIL [Suspect]
     Active Substance: TADALAFIL
     Indication: Product used for unknown indication
     Route: 065
  3. RIVAROXABAN [Suspect]
     Active Substance: RIVAROXABAN
     Indication: Product used for unknown indication
     Route: 065
  4. FLUTICASONE [Suspect]
     Active Substance: FLUTICASONE
     Indication: Dysphonia
     Route: 065
  5. BISOPROLOL [Suspect]
     Active Substance: BISOPROLOL
     Indication: Product used for unknown indication
  6. ASPIRIN [Suspect]
     Active Substance: ASPIRIN
     Indication: Product used for unknown indication
     Route: 065
  7. PANTOTHENIC ACID [Suspect]
     Active Substance: PANTOTHENIC ACID
     Indication: Product used for unknown indication
  8. IBUPROFEN [Suspect]
     Active Substance: IBUPROFEN
     Indication: Product used for unknown indication
     Route: 065
  9. IBUPROFEN [Suspect]
     Active Substance: IBUPROFEN
     Route: 065
  10. ROSUVASTATIN [Suspect]
     Active Substance: ROSUVASTATIN
     Indication: Product used for unknown indication
     Route: 065
  11. EVOLOCUMAB [Suspect]
     Active Substance: EVOLOCUMAB
     Indication: Product used for unknown indication
     Route: 065
  12. EVOLOCUMAB [Suspect]
     Active Substance: EVOLOCUMAB
     Dosage: 1 DOSAGE FORM, QW
     Route: 065
  13. TOCOPHEROL [Suspect]
     Active Substance: TOCOPHEROL
     Indication: Product used for unknown indication
     Route: 065
  14. DICLOFENAC [Suspect]
     Active Substance: DICLOFENAC
     Indication: Product used for unknown indication
  15. BIOTIN [Suspect]
     Active Substance: BIOTIN
     Indication: Product used for unknown indication
     Route: 065
  16. POTASSIUM ASPARTATE [Suspect]
     Active Substance: POTASSIUM ASPARTATE
     Indication: Product used for unknown indication
     Route: 065
  17. CALCIUM [Suspect]
     Active Substance: CALCIUM
     Indication: Product used for unknown indication
     Route: 065
  18. CALCIUM [Suspect]
     Active Substance: CALCIUM
     Route: 065
  19. TAMSULOSIN [Suspect]
     Active Substance: TAMSULOSIN
     Indication: Product used for unknown indication
     Route: 065
  20. ACETIC ACID [Suspect]
     Active Substance: ACETIC ACID
     Indication: Product used for unknown indication
     Route: 065
  21. ACETIC ACID [Suspect]
     Active Substance: ACETIC ACID
     Route: 065
  22. ALIROCUMAB [Suspect]
     Active Substance: ALIROCUMAB
     Indication: Product used for unknown indication
     Route: 065
  23. SOAP [Suspect]
     Active Substance: SOAP
     Indication: Bronchitis
     Route: 065
  24. HERBALS\PHENYL SALICYLATE [Suspect]
     Active Substance: HERBALS\PHENYL SALICYLATE
     Indication: Bronchitis
     Route: 065
  25. COLESEVELAM [Suspect]
     Active Substance: COLESEVELAM
     Indication: Product used for unknown indication
     Route: 065
  26. AMBROXOL [Suspect]
     Active Substance: AMBROXOL
     Indication: Product used for unknown indication
     Route: 065
  27. CLOPIDOGREL [Suspect]
     Active Substance: CLOPIDOGREL BISULFATE
     Indication: Product used for unknown indication
     Route: 065
  28. MAGNESIUM GLUCONATE [Suspect]
     Active Substance: MAGNESIUM GLUCONATE
     Indication: Product used for unknown indication
     Route: 065
  29. CALCIUM PANTOTHENATE [Suspect]
     Active Substance: CALCIUM PANTOTHENATE
     Indication: Product use in unapproved indication
     Route: 065
  30. MAGNESIUM OROTATE [Suspect]
     Active Substance: MAGNESIUM OROTATE
     Indication: Product used for unknown indication
     Route: 065
  31. OLMESARTAN [Concomitant]
     Active Substance: OLMESARTAN
     Indication: Product used for unknown indication
     Route: 065
  32. MOMETASONE [Suspect]
     Active Substance: MOMETASONE
     Indication: Product used for unknown indication
     Route: 065
  33. GINKGO [Suspect]
     Active Substance: GINKGO
     Indication: Product used for unknown indication
     Dosage: 1000 MG, BID (INTERVAL: 1 DAY) (UNK, STRENGTH: 500)
     Route: 065
  34. OLMESARTAN MEDOXOMIL [Suspect]
     Active Substance: OLMESARTAN MEDOXOMIL
     Indication: Product used for unknown indication
     Route: 065
  35. ERGOCALCIFEROL [Suspect]
     Active Substance: ERGOCALCIFEROL
     Indication: Product used for unknown indication
     Route: 065
  36. MAGNESIUM ASPARTATE [Concomitant]
     Active Substance: MAGNESIUM ASPARTATE
     Indication: Product used for unknown indication
     Route: 065
  37. PREDNISOLONE [Concomitant]
     Active Substance: PREDNISOLONE
     Indication: Product used for unknown indication
     Route: 065
  38. CIALIS [Concomitant]
     Active Substance: TADALAFIL
     Indication: Product used for unknown indication
     Route: 065

REACTIONS (23)
  - Dyspnoea [Unknown]
  - Increased upper airway secretion [Unknown]
  - Fractional exhaled nitric oxide increased [Recovered/Resolved]
  - Plantar fasciitis [Unknown]
  - Wheezing [Unknown]
  - Coronary artery disease [Unknown]
  - Brain natriuretic peptide increased [Unknown]
  - Cardiac disorder [Unknown]
  - Atrial fibrillation [Unknown]
  - Muscle spasms [Unknown]
  - Dyspnoea exertional [Unknown]
  - Myoglobin blood increased [Unknown]
  - Cough [Not Recovered/Not Resolved]
  - Chest discomfort [Unknown]
  - Sensation of foreign body [Unknown]
  - Secretion discharge [Unknown]
  - Obstructive sleep apnoea syndrome [Unknown]
  - Pneumothorax [Not Recovered/Not Resolved]
  - Dysphonia [Not Recovered/Not Resolved]
  - Obstructive airways disorder [Unknown]
  - Exostosis [Unknown]
  - Eosinophilia [Unknown]
  - Nasopharyngitis [Unknown]

NARRATIVE: CASE EVENT DATE: 20180101
